FAERS Safety Report 25998728 (Version 5)
Quarter: 2025Q4

REPORT INFORMATION
  Report Type: Report from Study
  Country: KR (occurrence: KR)
  Receive Date: 20251105
  Receipt Date: 20251125
  Transmission Date: 20260118
  Serious: Yes (Hospitalization, Other)
  Sender: ABBVIE
  Company Number: KR-ABBVIE-6364381

PATIENT
  Age: 42 Year
  Sex: Male
  Weight: 75 kg

DRUGS (26)
  1. RINVOQ [Suspect]
     Active Substance: UPADACITINIB
     Indication: Crohn^s disease
     Route: 048
     Dates: start: 20250407, end: 20250713
  2. RINVOQ [Suspect]
     Active Substance: UPADACITINIB
     Indication: Crohn^s disease
     Route: 048
     Dates: start: 20250714
  3. PENTASA [Concomitant]
     Active Substance: MESALAMINE
     Indication: Crohn^s disease
     Dosage: PENTASA SR 1000MG
     Route: 048
     Dates: start: 20120628
  4. ACETAMINOPHEN [Concomitant]
     Active Substance: ACETAMINOPHEN
     Indication: Prophylaxis
     Dosage: 650 MG/T, PRN
     Route: 048
     Dates: start: 20210320
  5. Encover [Concomitant]
     Indication: Prophylaxis
     Dosage: SOLUTION
     Route: 048
     Dates: start: 20210125
  6. FOLIC ACID [Concomitant]
     Active Substance: FOLIC ACID
     Indication: Prophylaxis
     Route: 048
     Dates: start: 20220622
  7. TIANEPTINE [Concomitant]
     Active Substance: TIANEPTINE
     Indication: Prophylaxis
     Route: 048
     Dates: start: 20210307
  8. TIROPRAMIDE [Concomitant]
     Active Substance: TIROPRAMIDE
     Indication: Prophylaxis
     Dosage: TIME INTERVAL: 0.33333333 DAYS
     Route: 048
     Dates: start: 20210810
  9. NALOXONE HYDROCHLORIDE\OXYCODONE HYDROCHLORIDE [Concomitant]
     Active Substance: NALOXONE HYDROCHLORIDE\OXYCODONE HYDROCHLORIDE
     Indication: Prophylaxis
     Dosage: TIME INTERVAL: 0.33333333 DAYS: CR 10/5 1 T/T
     Route: 048
     Dates: start: 20241101
  10. LOPERAMIDE HYDROCHLORIDE [Concomitant]
     Active Substance: LOPERAMIDE HYDROCHLORIDE
     Indication: Prophylaxis
     Dosage: TIME INTERVAL: 0.33333333 DAYS: 2 MG/C
     Route: 048
     Dates: start: 20241101
  11. Bolgre [Concomitant]
     Indication: Iron deficiency anaemia
     Route: 048
     Dates: start: 20211115
  12. Dicamax [Concomitant]
     Indication: Prophylaxis
     Route: 048
     Dates: start: 20210803
  13. Lanobin [Concomitant]
     Indication: Prophylaxis
     Route: 042
     Dates: start: 20250407, end: 20250407
  14. Lanobin [Concomitant]
     Indication: Prophylaxis
     Route: 030
     Dates: start: 20250519, end: 20250519
  15. Lanobin [Concomitant]
     Indication: Prophylaxis
     Route: 042
     Dates: start: 20250616, end: 20250616
  16. Lanobin [Concomitant]
     Indication: Prophylaxis
     Route: 030
     Dates: start: 20250421, end: 20250421
  17. Lanobin [Concomitant]
     Indication: Prophylaxis
     Route: 030
     Dates: start: 20250925, end: 20250925
  18. LEVOTHYROXINE SODIUM [Concomitant]
     Active Substance: LEVOTHYROXINE SODIUM
     Indication: Thyroid cancer
     Route: 048
     Dates: start: 201709
  19. NEURONTIN [Concomitant]
     Active Substance: GABAPENTIN
     Indication: Prophylaxis
     Dosage: TIME INTERVAL: 0.33333333 DAYS
     Route: 048
     Dates: start: 20210717
  20. Godex [Concomitant]
     Indication: Prophylaxis
     Dosage: TIME INTERVAL: 0.33333333 DAYS
     Route: 048
     Dates: start: 20210222
  21. Venoferrum [Concomitant]
     Indication: Iron deficiency anaemia
     Dosage: 100 MG/A
     Route: 042
     Dates: start: 20250421, end: 20250421
  22. Venoferrum [Concomitant]
     Indication: Iron deficiency anaemia
     Dosage: 100 MG/A
     Route: 042
     Dates: start: 20250616, end: 20250616
  23. Venoferrum [Concomitant]
     Indication: Iron deficiency anaemia
     Dosage: 100 MG/A
     Route: 042
     Dates: start: 20250407, end: 20250407
  24. Venoferrum [Concomitant]
     Indication: Iron deficiency anaemia
     Dosage: 100 MG/A
     Route: 042
     Dates: start: 20250519, end: 20250519
  25. FERINJECT [Concomitant]
     Active Substance: FERRIC CARBOXYMALTOSE
     Indication: Iron deficiency anaemia
     Route: 042
     Dates: start: 20250925, end: 20250925
  26. OXYCODONE HYDROCHLORIDE [Concomitant]
     Active Substance: OXYCODONE HYDROCHLORIDE
     Indication: Prophylaxis
     Dosage: 5 MG/T
     Route: 048
     Dates: start: 20250212

REACTIONS (2)
  - Small intestinal perforation [Recovering/Resolving]
  - Dyspepsia [Recovered/Resolved]

NARRATIVE: CASE EVENT DATE: 20250616
